FAERS Safety Report 25389263 (Version 1)
Quarter: 2025Q2

REPORT INFORMATION
  Report Type: Spontaneous
  Country: US (occurrence: None)
  Receive Date: 20250602
  Receipt Date: 20250602
  Transmission Date: 20250717
  Serious: No
  Sender: FDA-CTU
  Company Number: None

PATIENT
  Age: 74 Year
  Sex: Male
  Weight: 72 kg

DRUGS (1)
  1. DOCETAXEL [Suspect]
     Active Substance: DOCETAXEL
     Indication: Prostate cancer
     Route: 042
     Dates: start: 20230111, end: 20230111

REACTIONS (7)
  - Dyspnoea [None]
  - Hypotension [None]
  - Cardio-respiratory arrest [None]
  - Infusion related reaction [None]
  - Erythema [None]
  - Malaise [None]
  - Bradycardia [None]

NARRATIVE: CASE EVENT DATE: 20230111
